FAERS Safety Report 7715691-7 (Version None)
Quarter: 2011Q3

REPORT INFORMATION
  Report Type: 
  Country: None (occurrence: None)
  Receive Date: 20110829
  Receipt Date: 20110823
  Transmission Date: 20111222
  Serious: Yes (Other)
  Sender: FDA-Public Use
  Company Number: US-PFIZER INC-2011156668

PATIENT
  Age: 72 Year
  Sex: Female

DRUGS (2)
  1. PHENYTOIN [Suspect]
     Dosage: 100 MG, 3X/DAY
  2. DILANTIN-125 [Suspect]
     Dosage: 100 MG

REACTIONS (1)
  - CONVULSION [None]
